FAERS Safety Report 23717253 (Version 1)
Quarter: 2024Q2

REPORT INFORMATION
  Report Type: Spontaneous
  Country: US (occurrence: US)
  Receive Date: 20240408
  Receipt Date: 20240408
  Transmission Date: 20240716
  Serious: No
  Sender: FDA-Public Use
  Company Number: US-SA-SAC20240402000226

PATIENT
  Sex: Female

DRUGS (15)
  1. KEVZARA [Suspect]
     Active Substance: SARILUMAB
     Indication: Polymyalgia rheumatica
     Dosage: 200 MG, QOW
     Route: 058
  2. ALLOPURINOL [Concomitant]
     Active Substance: ALLOPURINOL
  3. AMLODIPINE [Concomitant]
     Active Substance: AMLODIPINE BESYLATE
     Dosage: 10 MG
  4. ATENOLOL [Concomitant]
     Active Substance: ATENOLOL
     Dosage: 100 MG
  5. ATORVASTATIN [Concomitant]
     Active Substance: ATORVASTATIN
     Dosage: 80 MG
  6. CINACALCET [Concomitant]
     Active Substance: CINACALCET
     Dosage: 60 MG
  7. EYLEA [Concomitant]
     Active Substance: AFLIBERCEPT
     Dosage: 2MG/0.05ML
  8. GABAPENTIN [Concomitant]
     Active Substance: GABAPENTIN
     Dosage: 800 MG
  9. INVOKANA [Concomitant]
     Active Substance: CANAGLIFLOZIN
     Dosage: 300 MG
  10. LETROZOLE [Concomitant]
     Active Substance: LETROZOLE
     Dosage: 2.5MG
  11. LOSARTAN POTASSIUM [Concomitant]
     Active Substance: LOSARTAN POTASSIUM
  12. MECLIZINE HYDROCHLORIDE [Concomitant]
     Active Substance: MECLIZINE HYDROCHLORIDE
     Dosage: 25MG
  13. MYRBETRIQ [Concomitant]
     Active Substance: MIRABEGRON
     Dosage: 25MG
  14. PREDNISONE [Concomitant]
     Active Substance: PREDNISONE
  15. VITAMIN B [Concomitant]
     Active Substance: VITAMIN B

REACTIONS (3)
  - Abdominal pain upper [Unknown]
  - Rhinorrhoea [Unknown]
  - Injection site bruising [Unknown]
